FAERS Safety Report 8270571-6 (Version None)
Quarter: 2012Q2

REPORT INFORMATION
  Report Type: 
  Country: None (occurrence: None)
  Receive Date: 20120410
  Receipt Date: 20120330
  Transmission Date: 20120825
  Serious: Yes (Hospitalization)
  Sender: FDA-Public Use
  Company Number: CA-BRISTOL-MYERS SQUIBB COMPANY-16496218

PATIENT
  Age: 72 Year
  Sex: Male

DRUGS (7)
  1. DIVALPROEX SODIUM [Concomitant]
     Dosage: TEVA DIVALPROEX
  2. FOLIC ACID [Concomitant]
     Dosage: EURO FOLIC
  3. SERTRALINE HYDROCHLORIDE [Concomitant]
     Dosage: PMS-SERTRALINE
  4. ORENCIA [Suspect]
     Indication: RHEUMATOID ARTHRITIS
     Dosage: LAST DOSE WAS GIVEN ON 15-MAR-2012  PATIENT HAD RECEIVED 2 INFUSIONS
     Route: 042
     Dates: start: 20120302
  5. VITAMIN D [Concomitant]
  6. ISONIAZID [Concomitant]
  7. ASAPHEN [Concomitant]

REACTIONS (4)
  - VOMITING [None]
  - PARKINSON'S DISEASE [None]
  - HYPERTENSION [None]
  - SUICIDAL IDEATION [None]
